FAERS Safety Report 18483511 (Version 1)
Quarter: 2020Q4

REPORT INFORMATION
  Report Type: Spontaneous
  Country: US (occurrence: US)
  Receive Date: 20201110
  Receipt Date: 20201110
  Transmission Date: 20210114
  Serious: Yes (Other)
  Sender: FDA-Public Use
  Company Number: US-TORRENT-00009441

PATIENT
  Sex: Female
  Weight: 78 kg

DRUGS (9)
  1. METOPROLOL. [Concomitant]
     Active Substance: METOPROLOL
     Indication: HYPERTENSION
     Dosage: USING LAST 2 YEARS
     Route: 048
     Dates: start: 2017
  2. HYDROCHLOROTHIAZIDE. [Concomitant]
     Active Substance: HYDROCHLOROTHIAZIDE
     Indication: PRODUCT USED FOR UNKNOWN INDICATION
     Dosage: SINCE APRIL 2019
     Route: 048
     Dates: start: 201904
  3. MEMANTINE. [Concomitant]
     Active Substance: MEMANTINE
     Indication: PRODUCT USED FOR UNKNOWN INDICATION
     Dosage: UNKNOWN PERIOD
     Route: 048
  4. HYDRALAZINE [Concomitant]
     Active Substance: HYDRALAZINE HYDROCHLORIDE
     Indication: PRODUCT USED FOR UNKNOWN INDICATION
     Dosage: USING SINCE LAST 2 YEARS
     Route: 048
     Dates: start: 2017
  5. NOVALINE [Concomitant]
     Indication: PRODUCT USED FOR UNKNOWN INDICATION
     Dosage: USING SINCE LAST 20 YEARS
     Dates: start: 1999
  6. CLONIDINE. [Concomitant]
     Active Substance: CLONIDINE
     Indication: HYPERTENSION
     Dosage: USING FROM LAST 3 YEARS
     Route: 048
     Dates: start: 2016
  7. LOSARTAN POTASSIUM TABLETS [Suspect]
     Active Substance: LOSARTAN POTASSIUM
     Indication: HYPERTENSION
     Dosage: FROM 1 OR 2 YEARS
     Route: 048
     Dates: end: 201909
  8. TRAZODONE [Concomitant]
     Active Substance: TRAZODONE HYDROCHLORIDE
     Indication: ANXIETY
     Dosage: USING SINCE 2012
     Route: 048
     Dates: start: 2012
  9. CITALOPRAM [Concomitant]
     Active Substance: CITALOPRAM HYDROBROMIDE
     Indication: MEMORY IMPAIRMENT
     Dosage: USING SINCE 2012
     Route: 048
     Dates: start: 2012

REACTIONS (6)
  - Peripheral swelling [Unknown]
  - Hypersensitivity [Unknown]
  - Mouth swelling [Unknown]
  - Eye swelling [Unknown]
  - Rash [Recovered/Resolved]
  - Lip swelling [Unknown]

NARRATIVE: CASE EVENT DATE: 2019
